FAERS Safety Report 11601925 (Version 1)
Quarter: 2015Q4

REPORT INFORMATION
  Report Type: Spontaneous
  Country: US (occurrence: US)
  Receive Date: 20151006
  Receipt Date: 20151006
  Transmission Date: 20160304
  Serious: No
  Sender: FDA-Public Use
  Company Number: US-AMGEN-USASP2015049720

PATIENT
  Age: 74 Year
  Sex: Female
  Weight: 67.57 kg

DRUGS (7)
  1. VALIUM [Concomitant]
     Active Substance: DIAZEPAM
     Dosage: 2 MG, QD
     Route: 048
  2. SOMA [Concomitant]
     Active Substance: CARISOPRODOL
     Dosage: 250 UNK, BID
     Route: 048
  3. PROLIA [Suspect]
     Active Substance: DENOSUMAB
     Indication: OSTEOPOROSIS
     Dosage: 60 UNK, Q6MO
     Route: 030
  4. STATIN                             /00036501/ [Concomitant]
     Active Substance: NYSTATIN
     Dosage: UNK
  5. SIMVASTATIN. [Concomitant]
     Active Substance: SIMVASTATIN
     Dosage: 20 MG, QD
     Route: 048
  6. HYDROCHLOROTHIAZIDE. [Concomitant]
     Active Substance: HYDROCHLOROTHIAZIDE
     Dosage: 12.5 UNK, QD
     Route: 048
  7. LEVOTHYROXINE. [Concomitant]
     Active Substance: LEVOTHYROXINE
     Dosage: 50 MUG, QD
     Route: 048

REACTIONS (2)
  - Rash [Recovered/Resolved]
  - Incorrect route of drug administration [Unknown]

NARRATIVE: CASE EVENT DATE: 20150504
